FAERS Safety Report 8586659-6 (Version None)
Quarter: 2012Q3

REPORT INFORMATION
  Report Type: 
  Country: None (occurrence: None)
  Receive Date: 20120810
  Receipt Date: 20120801
  Transmission Date: 20120928
  Serious: Yes (Hospitalization)
  Sender: FDA-Public Use
  Company Number: US-ASTRAZENECA-2012SE54895

PATIENT
  Sex: Female

DRUGS (2)
  1. ASTRAMORPH PF [Suspect]
     Route: 042
  2. TOPROL-XL [Suspect]
     Route: 048

REACTIONS (3)
  - ACCIDENT [None]
  - OVERDOSE [None]
  - HYPERSENSITIVITY [None]
